FAERS Safety Report 6716391-2 (Version None)
Quarter: 2010Q2

REPORT INFORMATION
  Report Type: 
  Country: None (occurrence: None)
  Receive Date: 20100507
  Receipt Date: 20100427
  Transmission Date: 20101027
  Serious: Yes (Other)
  Sender: FDA-Public Use
  Company Number: US-B.I. PHARMACEUTICALS,INC./RIDGEFIELD-2010-DE-02353GD

PATIENT
  Age: 3 Month
  Sex: Male

DRUGS (3)
  1. CATAPRESAN TTS [Suspect]
     Indication: DRUG WITHDRAWAL SYNDROME NEONATAL
     Dosage: 50 MCG
     Route: 062
  2. CLONIDINE [Suspect]
     Indication: DRUG WITHDRAWAL SYNDROME NEONATAL
     Dosage: 30 MCG
     Route: 048
  3. METHADONE HCL [Concomitant]
     Indication: DRUG WITHDRAWAL SYNDROME NEONATAL
     Dosage: 0.75 MG
     Route: 048

REACTIONS (6)
  - AGITATION [None]
  - DRUG WITHDRAWAL SYNDROME [None]
  - HYPERTENSION [None]
  - IRRITABILITY [None]
  - TACHYCARDIA [None]
  - TREMOR [None]
